FAERS Safety Report 21371209 (Version 3)
Quarter: 2023Q1

REPORT INFORMATION
  Report Type: Spontaneous
  Country: US (occurrence: US)
  Receive Date: 20220923
  Receipt Date: 20230109
  Transmission Date: 20230418
  Serious: No
  Sender: FDA-Public Use
  Company Number: US-PFIZER INC-PV202200046109

PATIENT
  Age: 79 Year
  Sex: Male

DRUGS (1)
  1. EUCRISA [Suspect]
     Active Substance: CRISABOROLE
     Dosage: UNK UNK, 1X/DAY (60-G TUBE)
     Route: 061

REACTIONS (2)
  - Seasonal allergy [Unknown]
  - Off label use [Unknown]
